FAERS Safety Report 7439089-4 (Version None)
Quarter: 2011Q2

REPORT INFORMATION
  Report Type: 
  Country: None (occurrence: None)
  Receive Date: 20110427
  Receipt Date: 20110418
  Transmission Date: 20111010
  Serious: Yes (Other)
  Sender: FDA-Public Use
  Company Number: US-ASTRAZENECA-2007UW06185

PATIENT
  Age: 754 Month
  Sex: Male
  Weight: 80.7 kg

DRUGS (8)
  1. TRIAMCINOLONE [Concomitant]
     Dates: start: 20040614
  2. LIPITOR [Concomitant]
     Route: 048
     Dates: start: 20060213
  3. LITHIUM CARBONATE [Concomitant]
     Route: 048
     Dates: start: 20040406
  4. SEROQUEL [Suspect]
     Indication: SLEEP DISORDER
     Dosage: 50 -200 MG
     Route: 048
     Dates: start: 20020401, end: 20060301
  5. NIFEDIPINE [Concomitant]
     Route: 048
     Dates: start: 20050505
  6. SEROQUEL [Suspect]
     Route: 048
     Dates: start: 20050120
  7. HYDROCHLOROT [Concomitant]
     Route: 048
     Dates: start: 20050425
  8. SYNTHROID [Concomitant]
     Route: 048
     Dates: start: 20050505

REACTIONS (4)
  - GLYCOSURIA [None]
  - TYPE 2 DIABETES MELLITUS [None]
  - RENAL FAILURE [None]
  - PROSTATE CANCER [None]
